FAERS Safety Report 4437694-0 (Version None)
Quarter: 2004Q3

REPORT INFORMATION
  Report Type: 
  Country: None (occurrence: None)
  Receive Date: 20040831
  Receipt Date: 20030701
  Transmission Date: 20050211
  Serious: No
  Sender: FDA-Public Use
  Company Number: US-GLAXOSMITHKLINE-A0414833A

PATIENT
  Age: 55 Year
  Sex: Female

DRUGS (4)
  1. ZOVIRAX [Suspect]
     Dosage: 200MG SEE DOSAGE TEXT
     Route: 048
     Dates: start: 20010701, end: 20020701
  2. ACYCLOVIR [Suspect]
     Route: 048
  3. MULTIVITAMIN [Concomitant]
  4. CALCIUM [Concomitant]

REACTIONS (5)
  - HAEMATOCRIT DECREASED [None]
  - PRURITUS [None]
  - RED BLOOD CELL SEDIMENTATION RATE DECREASED [None]
  - RETINOPATHY CONGENITAL [None]
  - VASCULITIS [None]
